FAERS Safety Report 16184836 (Version 1)
Quarter: 2019Q2

REPORT INFORMATION
  Report Type: Spontaneous
  Country: US (occurrence: US)
  Receive Date: 20190411
  Receipt Date: 20190411
  Transmission Date: 20190711
  Serious: Yes (Other)
  Sender: FDA-Public Use
  Company Number: US-PIERREL PHARMA S.P.A.-2018PIR00015

PATIENT
  Sex: Female
  Weight: 95.24 kg

DRUGS (1)
  1. ORABLOC [Suspect]
     Active Substance: ARTICAINE HYDROCHLORIDE\EPINEPHRINE BITARTRATE
     Indication: INFILTRATION ANAESTHESIA
     Dosage: 1.8 ML
     Route: 004

REACTIONS (2)
  - Malaise [Recovered/Resolved]
  - Anaphylactic reaction [Recovered/Resolved]
